FAERS Safety Report 4919185-3 (Version None)
Quarter: 2006Q1

REPORT INFORMATION
  Report Type: 
  Country: None (occurrence: None)
  Receive Date: 20060113
  Receipt Date: 20050926
  Transmission Date: 20060701
  Serious: No
  Sender: FDA-Public Use
  Company Number: 2005SP002095

PATIENT
  Age: 68 Year
  Sex: Female
  Weight: 58.9676 kg

DRUGS (10)
  1. LUNESTA [Suspect]
     Indication: INSOMNIA
     Dosage: SEE IMAGE
     Route: 048
     Dates: start: 20050101, end: 20050101
  2. LUNESTA [Suspect]
     Indication: TINNITUS
     Dosage: SEE IMAGE
     Route: 048
     Dates: start: 20050101, end: 20050101
  3. LUNESTA [Suspect]
     Indication: INSOMNIA
     Dosage: SEE IMAGE
     Route: 048
     Dates: start: 20050101, end: 20050101
  4. LUNESTA [Suspect]
     Indication: TINNITUS
     Dosage: SEE IMAGE
     Route: 048
     Dates: start: 20050101, end: 20050101
  5. LUNESTA [Suspect]
     Indication: INSOMNIA
     Dosage: SEE IMAGE
     Route: 048
     Dates: start: 20050722, end: 20050101
  6. LUNESTA [Suspect]
     Indication: TINNITUS
     Dosage: SEE IMAGE
     Route: 048
     Dates: start: 20050722, end: 20050101
  7. LUNESTA [Suspect]
     Indication: INSOMNIA
     Dosage: SEE IMAGE
     Route: 048
     Dates: start: 20050101, end: 20050725
  8. LUNESTA [Suspect]
     Indication: TINNITUS
     Dosage: SEE IMAGE
     Route: 048
     Dates: start: 20050101, end: 20050725
  9. ALEVE [Concomitant]
  10. METOCLOPRAMIDE [Concomitant]

REACTIONS (11)
  - ANOREXIA [None]
  - DIZZINESS [None]
  - DRY MOUTH [None]
  - DYSGEUSIA [None]
  - HANGOVER [None]
  - HYPOAESTHESIA [None]
  - NAUSEA [None]
  - PERIPHERAL COLDNESS [None]
  - RHINORRHOEA [None]
  - SLEEP DISORDER [None]
  - TINNITUS [None]
